FAERS Safety Report 20564916 (Version 1)
Quarter: 2022Q1

REPORT INFORMATION
  Report Type: Spontaneous
  Country: US (occurrence: US)
  Receive Date: 20220308
  Receipt Date: 20220308
  Transmission Date: 20220424
  Serious: No
  Sender: FDA-Public Use
  Company Number: US-GSKCCFUS-Case-01312724_AE-76410

PATIENT
  Sex: Female

DRUGS (2)
  1. ZEJULA [Suspect]
     Active Substance: NIRAPARIB
     Indication: Product used for unknown indication
     Dosage: UNK (UNK DOSE)
  2. ZEJULA [Suspect]
     Active Substance: NIRAPARIB
     Dosage: 100 MG

REACTIONS (1)
  - Palpitations [Unknown]
